FAERS Safety Report 10925522 (Version 1)
Quarter: 2015Q1

REPORT INFORMATION
  Report Type: Spontaneous
  Country: US (occurrence: None)
  Receive Date: 20150129
  Receipt Date: 20150129
  Transmission Date: 20150721
  Serious: Yes (Other)
  Sender: FDA-Public Use
  Company Number: 122951U

PATIENT
  Age: 15 Year
  Sex: Female

DRUGS (1)
  1. LEVETIRACTAM [Suspect]
     Active Substance: LEVETIRACETAM
     Dosage: UNKNOWN DOSE

REACTIONS (2)
  - Drug ineffective [None]
  - Generalised tonic-clonic seizure [None]
